FAERS Safety Report 14527287 (Version 3)
Quarter: 2018Q1

REPORT INFORMATION
  Report Type: Report from Study
  Country: BG (occurrence: BG)
  Receive Date: 20180213
  Receipt Date: 20180302
  Transmission Date: 20180509
  Serious: Yes (Hospitalization)
  Sender: FDA-Public Use
  Company Number: BG-TEVA-2018-BG-855433

PATIENT
  Age: 59 Year
  Sex: Male

DRUGS (11)
  1. ONDANSETRON [Concomitant]
     Active Substance: ONDANSETRON
     Route: 065
     Dates: start: 20171114, end: 20171207
  2. HYDROXYZINE HYDROCHLORIDE. [Concomitant]
     Active Substance: HYDROXYZINE HYDROCHLORIDE
     Route: 065
     Dates: start: 20171017
  3. FLUOCINOLONE ACETONIDE. [Concomitant]
     Active Substance: FLUOCINOLONE ACETONIDE
     Route: 065
     Dates: start: 20171119, end: 20171128
  4. CARBOPLATIN. [Suspect]
     Active Substance: CARBOPLATIN
     Indication: SMALL CELL LUNG CANCER
     Dosage: LAST DOSE PRIOR TO SAE ON 07/DEC/2017
     Route: 042
     Dates: start: 20171024
  5. NIMESULIDE [Concomitant]
     Active Substance: NIMESULIDE
     Route: 065
     Dates: start: 20171119, end: 20171128
  6. NADROPARIN CALCIUM [Concomitant]
     Active Substance: NADROPARIN CALCIUM
     Route: 058
     Dates: start: 20171212
  7. CHLOPHADON [Concomitant]
     Route: 065
     Dates: start: 201608
  8. ETOPOSIDE. [Suspect]
     Active Substance: ETOPOSIDE
     Indication: SMALL CELL LUNG CANCER
     Dosage: LAST DOSE PRIOR TO SAE ON 07/DEC/2017
     Route: 015
     Dates: start: 20171024
  9. NADROPARIN CALCIUM [Concomitant]
     Active Substance: NADROPARIN CALCIUM
     Route: 065
     Dates: start: 20171205, end: 20171207
  10. ATEZOLIZUMAB. [Suspect]
     Active Substance: ATEZOLIZUMAB
     Indication: SMALL CELL LUNG CANCER
     Dosage: LAST DOSE PRIOR TO SAE ON 07/DEC/2017
     Route: 042
     Dates: start: 20171024
  11. BLINDED TRILACICLIB [Suspect]
     Active Substance: TRILACICLIB
     Indication: SMALL CELL LUNG CANCER
     Dosage: LAST DOSE PRIOR TO SAE ON 07/DEC/2017
     Route: 065
     Dates: start: 20171024

REACTIONS (1)
  - Deep vein thrombosis [Recovering/Resolving]

NARRATIVE: CASE EVENT DATE: 20171207
